FAERS Safety Report 17270192 (Version 4)
Quarter: 2020Q2

REPORT INFORMATION
  Report Type: Spontaneous
  Country: JP (occurrence: JP)
  Receive Date: 20200114
  Receipt Date: 20200601
  Transmission Date: 20200713
  Serious: Yes (Hospitalization)
  Sender: FDA-Public Use
  Company Number: NVSJ2019JP006570

PATIENT
  Age: 83 Year
  Sex: Female
  Weight: 40.2 kg

DRUGS (9)
  1. BONOTEO [Concomitant]
     Active Substance: MINODRONIC ACID
     Indication: OSTEOPOROSIS
     Dosage: 50 MG
     Route: 048
  2. MUCOSTA [Concomitant]
     Active Substance: REBAMIPIDE
     Indication: GASTRITIS
     Dosage: 100 MG, BID
     Route: 048
  3. COSENTYX [Suspect]
     Active Substance: SECUKINUMAB
     Indication: PSORIATIC ARTHROPATHY
     Dosage: 150 MG
     Route: 058
     Dates: start: 20181114
  4. COSENTYX [Suspect]
     Active Substance: SECUKINUMAB
     Dosage: 150 MG, Q4W
     Route: 058
  5. VITAMINS NOS [Concomitant]
     Active Substance: VITAMINS
     Indication: LUMBAR SPINAL STENOSIS
     Dosage: 5 MG, BID
     Route: 065
  6. BLOPRESS [Concomitant]
     Active Substance: CANDESARTAN CILEXETIL
     Indication: HYPERTENSION
     Dosage: 4 MG
     Route: 048
  7. VESICARE [Concomitant]
     Active Substance: SOLIFENACIN SUCCINATE
     Indication: HYPERTONIC BLADDER
     Dosage: 5 MG
     Route: 048
  8. FEBURIC [Concomitant]
     Active Substance: FEBUXOSTAT
     Indication: HYPERURICAEMIA
     Dosage: 10 MG
     Route: 048
  9. DIART [Concomitant]
     Active Substance: AZOSEMIDE
     Indication: CARDIAC FAILURE
     Dosage: 15 MG
     Route: 048

REACTIONS (4)
  - Nasopharyngitis [Recovering/Resolving]
  - C-reactive protein increased [Recovering/Resolving]
  - Pyrexia [Recovering/Resolving]
  - Pneumonia pneumococcal [Recovering/Resolving]

NARRATIVE: CASE EVENT DATE: 20191224
